FAERS Safety Report 25621445 (Version 1)
Quarter: 2025Q3

REPORT INFORMATION
  Report Type: Spontaneous
  Country: CO (occurrence: CO)
  Receive Date: 20250730
  Receipt Date: 20250730
  Transmission Date: 20251021
  Serious: Yes (Hospitalization, Other)
  Sender: SANDOZ
  Company Number: CO-002147023-NVSC2025CO104280

PATIENT
  Age: 73 Year
  Sex: Male
  Weight: 63.4 kg

DRUGS (11)
  1. ENTRESTO [Suspect]
     Active Substance: SACUBITRIL\VALSARTAN
     Indication: Cardiac failure
     Dosage: 50 MG, QD, START DATE: ??-JAN-2024. 50 MG, QD (APPROXIMATELY 1 YEAR AND A HALF AGO)
     Route: 048
  2. RIVASTIGMINE [Suspect]
     Active Substance: RIVASTIGMINE
     Indication: Dementia
     Dosage: UNK, QD, START DATE: ??-???-2023
     Route: 062
  3. ASPIRIN [Concomitant]
     Active Substance: ASPIRIN
     Indication: Cardiac failure
     Dosage: 100 MG, QD
     Route: 048
     Dates: start: 202401
  4. EMPAGLIFLOZIN [Concomitant]
     Active Substance: EMPAGLIFLOZIN
     Indication: Cardiac failure
     Dosage: 10 MG, QD
     Route: 048
     Dates: start: 202401
  5. EZETIMIBE [Concomitant]
     Active Substance: EZETIMIBE
     Indication: Cardiac failure
     Dosage: 10 MG, QD
     Route: 048
     Dates: start: 202401
  6. METOPROLOL SUCCINATE [Concomitant]
     Active Substance: METOPROLOL SUCCINATE
     Indication: Cardiac failure
     Dosage: 25 MG, QD
     Route: 065
     Dates: start: 202401
  7. METOPROLOL SUCCINATE [Concomitant]
     Active Substance: METOPROLOL SUCCINATE
     Dosage: 50 MG, QD
     Route: 065
     Dates: start: 202401
  8. QUETIAPINE [Concomitant]
     Active Substance: QUETIAPINE
     Indication: Dementia
     Dosage: 23 MG, QD
     Route: 048
     Dates: start: 2023
  9. ROSUVASTATIN [Concomitant]
     Active Substance: ROSUVASTATIN
     Indication: Cardiac failure
     Dosage: 40 MG, QD
     Route: 048
     Dates: start: 202401
  10. SERTRALINE [Concomitant]
     Active Substance: SERTRALINE HYDROCHLORIDE
     Indication: Dementia
     Dosage: 50 MG, QD
     Route: 048
     Dates: start: 2023
  11. SPIRONOLACTONE [Concomitant]
     Active Substance: SPIRONOLACTONE
     Indication: Cardiac failure
     Dosage: 25 MG, QD
     Route: 048
     Dates: start: 202401

REACTIONS (30)
  - Duodenal ulcer [Unknown]
  - Off label use [Recovered/Resolved]
  - Electrocardiogram ST segment depression [Unknown]
  - Electrocardiogram T wave inversion [Unknown]
  - Akinesia [Unknown]
  - Ventricular hypokinesia [Unknown]
  - Tricuspid valve incompetence [Unknown]
  - Chronic kidney disease [Unknown]
  - Mitral valve incompetence [Unknown]
  - Electrocardiogram repolarisation abnormality [Unknown]
  - Dilated cardiomyopathy [Unknown]
  - Supraventricular tachycardia [Unknown]
  - Atrial septal defect [Unknown]
  - Systolic dysfunction [Unknown]
  - Diastolic dysfunction [Unknown]
  - Diaphragmatic abnormal relaxation [Unknown]
  - Mitral valve sclerosis [Unknown]
  - Pulmonary arterial pressure abnormal [Unknown]
  - Blood cholesterol abnormal [Unknown]
  - Blood creatinine abnormal [Unknown]
  - Aortic valve sclerosis [Unknown]
  - Haemoglobin abnormal [Unknown]
  - Haematocrit abnormal [Unknown]
  - Ventricular extrasystoles [Unknown]
  - Atrial pressure increased [Unknown]
  - Sinus bradycardia [Unknown]
  - N-terminal prohormone brain natriuretic peptide increased [Unknown]
  - Low density lipoprotein abnormal [Unknown]
  - Type IIa hyperlipidaemia [Unknown]
  - Pain [Unknown]

NARRATIVE: CASE EVENT DATE: 20241030
